FAERS Safety Report 5825809-9 (Version None)
Quarter: 2008Q3

REPORT INFORMATION
  Report Type: 
  Country: None (occurrence: None)
  Receive Date: 20080729
  Receipt Date: 20080718
  Transmission Date: 20090109
  Serious: Yes (Hospitalization)
  Sender: FDA-Public Use
  Company Number: US-JNJFOC-20080703474

PATIENT
  Sex: Male
  Weight: 104.78 kg

DRUGS (11)
  1. REMICADE [Suspect]
     Route: 042
  2. REMICADE [Suspect]
     Route: 042
  3. REMICADE [Suspect]
     Route: 042
  4. REMICADE [Suspect]
     Indication: CROHN'S DISEASE
     Route: 042
  5. BUDESONIDE [Suspect]
     Indication: CROHN'S DISEASE
  6. QUESTRAN [Suspect]
     Indication: CROHN'S DISEASE
  7. IMODIUM [Suspect]
     Indication: CROHN'S DISEASE
  8. PREVACID [Suspect]
     Indication: CROHN'S DISEASE
  9. ADALIMUMAB [Suspect]
     Indication: CROHN'S DISEASE
  10. LOMOTIL [Suspect]
     Indication: CROHN'S DISEASE
  11. ACETAMINOPHEN [Concomitant]
     Indication: PREMEDICATION

REACTIONS (2)
  - DEHYDRATION [None]
  - ELECTROLYTE IMBALANCE [None]
